FAERS Safety Report 9143254 (Version 2)
Quarter: 2013Q1

REPORT INFORMATION
  Report Type: Spontaneous
  Country: IN (occurrence: IN)
  Receive Date: 20130306
  Receipt Date: 20130318
  Transmission Date: 20140127
  Serious: Yes (Hospitalization)
  Sender: FDA-Public Use
  Company Number: PHHY2013IN021499

PATIENT
  Age: 66 Year
  Sex: Male

DRUGS (1)
  1. CLOZAPINE [Suspect]
     Indication: SCHIZOPHRENIA
     Dosage: UNK

REACTIONS (9)
  - Catatonia [Recovered/Resolved]
  - Immobile [Unknown]
  - Mutism [Not Recovered/Not Resolved]
  - Communication disorder [Unknown]
  - Negativism [Not Recovered/Not Resolved]
  - Waxy flexibility [Unknown]
  - Stupor [Not Recovered/Not Resolved]
  - Tremor [Unknown]
  - Muscle rigidity [Unknown]
